FAERS Safety Report 5369626-5 (Version None)
Quarter: 2007Q2

REPORT INFORMATION
  Report Type: 
  Country: None (occurrence: None)
  Receive Date: 20070625
  Receipt Date: 20070619
  Transmission Date: 20071010
  Serious: Yes (Other)
  Sender: FDA-Public Use
  Company Number: GB-BRISTOL-MYERS SQUIBB COMPANY-13820063

PATIENT
  Age: 4 Decade
  Sex: Male

DRUGS (2)
  1. VIDEX [Suspect]
     Route: 048
  2. ZERIT [Suspect]

REACTIONS (1)
  - HEPATIC FIBROSIS [None]
